FAERS Safety Report 8307500-2 (Version None)
Quarter: 2012Q2

REPORT INFORMATION
  Report Type: 
  Country: None (occurrence: None)
  Receive Date: 20120424
  Receipt Date: 20120419
  Transmission Date: 20120825
  Serious: Yes (Other)
  Sender: FDA-Public Use
  Company Number: PHHY2011CA24795

PATIENT
  Sex: Female

DRUGS (11)
  1. METOPROLOL TARTRATE [Concomitant]
     Dosage: 25 MG, BID
     Dates: start: 19990101
  2. RABEPRAZOLE SODIUM [Concomitant]
     Dosage: 20 MG, QD
     Dates: start: 20050101
  3. ZOLEDRONOC ACID [Suspect]
     Dosage: UNK UKN, UNK
     Route: 042
     Dates: start: 20100416
  4. CALCIUM [Concomitant]
     Dosage: UNK UKN, UNK
     Dates: end: 20030601
  5. CELEXA [Concomitant]
     Dosage: 10 MG, QD
     Dates: start: 20100201
  6. EZETIMIBE [Concomitant]
     Dosage: 10 MG, QD
     Dates: start: 20070301
  7. ZOLEDRONOC ACID [Suspect]
     Indication: OSTEOPOROSIS
     Dosage: 5 MG, YEARLY
     Route: 042
     Dates: start: 20090413
  8. ZOLEDRONOC ACID [Suspect]
     Dosage: UNK UKN, UNK
     Route: 042
     Dates: start: 20110418
  9. ZOLEDRONOC ACID [Suspect]
     Dosage: UNK UKN, UNK
     Route: 042
     Dates: start: 20120418
  10. LIPITOR [Concomitant]
     Dosage: 40 MG, QD
     Dates: start: 20051001
  11. VITAMIN D [Concomitant]
     Dosage: UNK UKN, UNK
     Dates: end: 20030601

REACTIONS (5)
  - UPPER LIMB FRACTURE [None]
  - HUMERUS FRACTURE [None]
  - RIB FRACTURE [None]
  - NERVOUSNESS [None]
  - FALL [None]
